FAERS Safety Report 8799000 (Version 1)
Quarter: 2012Q4

REPORT INFORMATION
  Report Type: Spontaneous
  Country: US (occurrence: None)
  Receive Date: 20120914
  Receipt Date: 20120914
  Transmission Date: 20130627
  Serious: Yes (Other)
  Sender: FDA-Public Use
  Company Number: 1403634

PATIENT
  Age: 57 Year
  Sex: Male
  Weight: 60.4 kg

DRUGS (1)
  1. PACLITAXEL [Suspect]
     Indication: LUNG DISORDER
     Route: 042
     Dates: start: 20120830

REACTIONS (3)
  - Dyspnoea [None]
  - Flushing [None]
  - Visual impairment [None]
